FAERS Safety Report 6619573 (Version 2)
Quarter: 2016Q1

REPORT INFORMATION
  Report Type: Spontaneous
  Country: FR (occurrence: FR)
  Receive Date: 20080421
  Receipt Date: 20160331
  Transmission Date: 20160526
  Serious: Yes (Hospitalization, Other)
  Sender: FDA-Public Use
  Company Number: FR-BRISTOL-MYERS SQUIBB COMPANY-14156186

PATIENT
  Age: 92 Year
  Sex: Male

DRUGS (4)
  1. INNOHEP [Suspect]
     Active Substance: TINZAPARIN SODIUM
     Indication: PULMONARY EMBOLISM
     Dosage: 1 DF, QD
     Route: 065
     Dates: start: 20080219, end: 20080221
  2. COUMADIN [Suspect]
     Active Substance: WARFARIN SODIUM
     Indication: PULMONARY EMBOLISM
     Dosage: 4 MG, QD
     Route: 048
     Dates: start: 20080206, end: 20080207
  3. CALCIPARINE [Suspect]
     Active Substance: HEPARIN CALCIUM
     Indication: PULMONARY EMBOLISM
     Dosage: 1DOSAGE FORM=12 500 IU/0.5ML.
     Route: 058
     Dates: start: 20080204, end: 20080210
  4. TAHOR [Suspect]
     Active Substance: ATORVASTATIN CALCIUM
     Indication: PRODUCT USED FOR UNKNOWN INDICATION
     Dosage: 10 MG, QD
     Route: 065
     Dates: start: 20080208

REACTIONS (5)
  - Acute kidney injury [Unknown]
  - Pulmonary embolism [Unknown]
  - Overdose [Unknown]
  - Haematoma [Unknown]
  - Dehydration [Unknown]

NARRATIVE: CASE EVENT DATE: 2008
